FAERS Safety Report 18053694 (Version 1)
Quarter: 2020Q3

REPORT INFORMATION
  Report Type: Spontaneous
  Country: US (occurrence: US)
  Receive Date: 20200721
  Receipt Date: 20200721
  Transmission Date: 20201103
  Serious: Yes (Other)
  Sender: FDA-Public Use
  Company Number: None

PATIENT
  Age: 62 Year
  Sex: Male
  Weight: 101.25 kg

DRUGS (7)
  1. WELLBUTRIN [Concomitant]
     Active Substance: BUPROPION HYDROCHLORIDE
  2. ACCUTANE [Concomitant]
     Active Substance: ISOTRETINOIN
  3. BUPROPION HCL XL TABLETS 300 MG [Suspect]
     Active Substance: BUPROPION HYDROCHLORIDE
     Indication: ANXIETY
     Dosage: ?          QUANTITY:60 TABLET(S);?
     Route: 048
     Dates: start: 20200627, end: 20200715
  4. CIALIS [Concomitant]
     Active Substance: TADALAFIL
  5. MVM [Concomitant]
  6. CLARITIN [Concomitant]
     Active Substance: LORATADINE
  7. BUPROPION HCL XL TABLETS 300 MG [Suspect]
     Active Substance: BUPROPION HYDROCHLORIDE
     Indication: DEPRESSION
     Dosage: ?          QUANTITY:60 TABLET(S);?
     Route: 048
     Dates: start: 20200627, end: 20200715

REACTIONS (4)
  - Irritability [None]
  - Insomnia [None]
  - Drug ineffective [None]
  - Product quality issue [None]

NARRATIVE: CASE EVENT DATE: 20200701
